FAERS Safety Report 10237255 (Version 2)
Quarter: 2014Q2

REPORT INFORMATION
  Report Type: Spontaneous
  Country: BR (occurrence: BR)
  Receive Date: 20140613
  Receipt Date: 20140613
  Transmission Date: 20141212
  Serious: Yes (Other)
  Sender: FDA-Public Use
  Company Number: BR-PFIZER INC-2013113221

PATIENT
  Age: 65 Year
  Sex: Female
  Weight: 59 kg

DRUGS (5)
  1. CHAMPIX [Suspect]
     Indication: SMOKING CESSATION THERAPY
     Dosage: UNK
     Route: 048
     Dates: start: 20111102, end: 201302
  2. AMITRIPTYLINE [Concomitant]
     Indication: DEPRESSION
     Dosage: 75 MG, DAILY
     Dates: start: 2012
  3. OSTEOBLOCK [Concomitant]
     Indication: OSTEOPOROSIS
     Dosage: 35 MG, WEEKLY
     Dates: start: 2009
  4. RIVOTRIL [Concomitant]
     Indication: DEPRESSION
     Dosage: 2 MG, DAILY
     Dates: start: 2012
  5. SIMVASTATIN [Concomitant]
     Indication: BLOOD CHOLESTEROL ABNORMAL
     Dosage: 40 MG CAPSULE, DAILY
     Dates: start: 2011

REACTIONS (2)
  - Bipolar disorder [Unknown]
  - Memory impairment [Unknown]
